FAERS Safety Report 10027191 (Version 3)
Quarter: 2014Q2

REPORT INFORMATION
  Report Type: Spontaneous
  Country: US (occurrence: US)
  Receive Date: 20140321
  Receipt Date: 20140512
  Transmission Date: 20141212
  Serious: Yes (Hospitalization, Other)
  Sender: FDA-Public Use
  Company Number: US-009507513-1403USA006287

PATIENT
  Age: 70 Year
  Sex: Male

DRUGS (7)
  1. TEMODAR [Suspect]
     Indication: BRAIN NEOPLASM
     Dosage: COMBINATION OF 250MG AND 180 MG
     Route: 048
     Dates: start: 201303, end: 2014
  2. TEMODAR [Suspect]
     Indication: GLIOBLASTOMA
  3. TEMODAR [Suspect]
     Indication: BRAIN NEOPLASM
     Dosage: COMBINATION OF 250 MG AND 180 MG CAPSULES
     Dates: start: 201303, end: 2014
  4. TEMODAR [Suspect]
     Indication: GLIOBLASTOMA
  5. TEMODAR [Suspect]
     Indication: GLIOBLASTOMA MULTIFORME
     Dosage: UNK
     Route: 048
     Dates: end: 201401
  6. KEPPRA [Concomitant]
  7. HEXADROL TABLETS [Concomitant]
     Route: 048

REACTIONS (18)
  - Glioblastoma [Unknown]
  - Brain tumour operation [Not Recovered/Not Resolved]
  - Blood count abnormal [Not Recovered/Not Resolved]
  - Red blood cell count decreased [Unknown]
  - Red blood cell count decreased [Unknown]
  - Mean cell volume increased [Unknown]
  - Mean cell haemoglobin increased [Unknown]
  - Mean cell haemoglobin increased [Unknown]
  - Red cell distribution width increased [Unknown]
  - Red cell distribution width increased [Unknown]
  - Macrocytosis [Unknown]
  - Polychromasia [Unknown]
  - Brain operation [Unknown]
  - Drug ineffective [Not Recovered/Not Resolved]
  - Fatigue [Not Recovered/Not Resolved]
  - Constipation [Not Recovered/Not Resolved]
  - Platelet count decreased [Recovered/Resolved]
  - Platelet count decreased [Recovered/Resolved]
